FAERS Safety Report 9855476 (Version 2)
Quarter: 2014Q1

REPORT INFORMATION
  Report Type: Report from Study
  Country: BE (occurrence: BE)
  Receive Date: 20140130
  Receipt Date: 20140130
  Transmission Date: 20141002
  Serious: Yes (Hospitalization)
  Sender: FDA-Public Use
  Company Number: BE-ABBVIE-11P-013-0729543-00

PATIENT
  Age: 41 Year
  Sex: Female
  Weight: 59 kg

DRUGS (12)
  1. HUMIRA [Suspect]
     Indication: CROHN^S DISEASE
     Route: 058
     Dates: start: 20080331, end: 20080331
  2. HUMIRA [Suspect]
     Dosage: WEEK 2
     Route: 058
  3. HUMIRA [Suspect]
     Route: 058
     Dates: end: 20110222
  4. MODURETIC [Concomitant]
     Indication: OEDEMA
     Dates: start: 20060601
  5. HALOPERIDOL [Concomitant]
     Indication: INSOMNIA
     Dates: start: 2009
  6. ACICLOVIR [Concomitant]
     Indication: ORAL HERPES
     Dates: start: 20100702
  7. ACICLOVIR [Concomitant]
     Indication: DERMATOSIS
     Dates: start: 20100715, end: 20100719
  8. ACICLOVIR [Concomitant]
     Dates: start: 20100720, end: 20110126
  9. ACICLOVIR [Concomitant]
     Dates: start: 20110127, end: 20110202
  10. ACICLOVIR [Concomitant]
     Dates: start: 20110203, end: 20110210
  11. ACICLOVIR [Concomitant]
     Dates: start: 20110211, end: 20110217
  12. ACICLOVIR [Concomitant]
     Dates: start: 20110218, end: 20110227

REACTIONS (1)
  - Dermatosis [Recovered/Resolved]
